FAERS Safety Report 15937558 (Version 1)
Quarter: 2019Q1

REPORT INFORMATION
  Report Type: Spontaneous
  Country: US (occurrence: US)
  Receive Date: 20190208
  Receipt Date: 20190208
  Transmission Date: 20190417
  Serious: Yes (Other)
  Sender: FDA-Public Use
  Company Number: US-REGENERON PHARMACEUTICALS, INC.-2019-15147

PATIENT

DRUGS (3)
  1. EYLEA [Suspect]
     Active Substance: AFLIBERCEPT
     Dosage: IN THE LEFT EYE
     Route: 031
     Dates: start: 20190117, end: 20190117
  2. EYLEA [Suspect]
     Active Substance: AFLIBERCEPT
     Indication: MACULAR DEGENERATION
     Dosage: UNK
     Route: 031
     Dates: start: 201808
  3. EYLEA [Suspect]
     Active Substance: AFLIBERCEPT
     Dosage: IN THE RIGHT EYE
     Route: 031
     Dates: start: 20181115, end: 20181115

REACTIONS (4)
  - Vitrectomy [Recovered/Resolved]
  - Headache [Unknown]
  - Mycotic endophthalmitis [Unknown]
  - Visual impairment [Not Recovered/Not Resolved]

NARRATIVE: CASE EVENT DATE: 20190110
